FAERS Safety Report 9450861 (Version 1)
Quarter: 2013Q3

REPORT INFORMATION
  Report Type: Spontaneous
  Country: PE (occurrence: None)
  Receive Date: 20130807
  Receipt Date: 20130807
  Transmission Date: 20140515
  Serious: Yes (Other)
  Sender: FDA-Public Use
  Company Number: AUR-APL-2013-06417

PATIENT
  Age: 9 Month
  Sex: 0

DRUGS (3)
  1. STAVUDINE [Suspect]
     Indication: HIV INFECTION
  2. NELFINAVIR [Suspect]
     Indication: HIV INFECTION
  3. LAMIVUDINE [Suspect]
     Indication: HIV INFECTION

REACTIONS (1)
  - Immune reconstitution inflammatory syndrome [None]
